FAERS Safety Report 9289094 (Version 2)
Quarter: 2013Q2

REPORT INFORMATION
  Report Type: Spontaneous
  Country: US (occurrence: None)
  Receive Date: 20130509
  Receipt Date: 20130523
  Transmission Date: 20140414
  Serious: Yes (Other)
  Sender: FDA-Public Use
  Company Number: AUR-APL-2013-03916

PATIENT
  Age: 41 Year
  Sex: Male
  Weight: 99.8 kg

DRUGS (8)
  1. LISINOPRIL + HYDROCHLOROTHIAZIDE [Suspect]
     Indication: BLOOD PRESSURE
     Route: 048
     Dates: start: 201201
  2. ATENOLOL [Suspect]
     Indication: BLOOD PRESSURE
  3. CRESTOR [Suspect]
     Indication: BLOOD CHOLESTEROL
     Dosage: 1D
     Route: 048
     Dates: start: 20130301, end: 20130311
  4. XANAX (ALPRAZOLAM) [Concomitant]
  5. PRAVASTATIN (PRAVASTATIN) [Concomitant]
  6. SYNTHROID (LEVOTHYROXINE SODIUM) [Concomitant]
  7. LIPITOR (ATORVASTATIN CALCIUM) [Concomitant]
  8. TRILIPIX [Concomitant]

REACTIONS (14)
  - Cough [None]
  - Fatigue [None]
  - Asthenia [None]
  - Diarrhoea [None]
  - Eye swelling [None]
  - Dysphemia [None]
  - Lethargy [None]
  - Abdominal distension [None]
  - Blood cholesterol increased [None]
  - Dysphemia [None]
  - Blood triglycerides increased [None]
  - Dizziness [None]
  - Adverse drug reaction [None]
  - Nausea [None]
